FAERS Safety Report 23811211 (Version 2)
Quarter: 2024Q2

REPORT INFORMATION
  Report Type: Spontaneous
  Country: US (occurrence: US)
  Receive Date: 20240502
  Receipt Date: 20240508
  Transmission Date: 20240716
  Serious: Yes (Life-Threatening, Other)
  Sender: FDA-Public Use
  Company Number: US-SANDOZ-SDZ2024US044705

PATIENT
  Sex: Female

DRUGS (1)
  1. HEPARIN [Suspect]
     Active Substance: HEPARIN SODIUM
     Indication: Atrial fibrillation
     Dosage: 6000 UNITS
     Route: 042

REACTIONS (3)
  - Cardiac arrest [Unknown]
  - Heparin-induced thrombocytopenia [Unknown]
  - Pulmonary haemorrhage [Unknown]
